FAERS Safety Report 6328468-4 (Version None)
Quarter: 2009Q3

REPORT INFORMATION
  Report Type: 
  Country: None (occurrence: None)
  Receive Date: 20090825
  Receipt Date: 20090623
  Transmission Date: 20100115
  Serious: No
  Sender: FDA-Public Use
  Company Number: US-ABBOTT-09P-163-0581492-00

PATIENT
  Sex: Female

DRUGS (2)
  1. SYNTHROID [Suspect]
     Indication: RADIOTHERAPY
     Route: 048
  2. SYNTHROID [Suspect]
     Indication: HYPERTHYROIDISM

REACTIONS (7)
  - ANGER [None]
  - EYELID OEDEMA [None]
  - INITIAL INSOMNIA [None]
  - IRRITABILITY [None]
  - SWELLING FACE [None]
  - SWOLLEN TONGUE [None]
  - THYROID DISORDER [None]
